FAERS Safety Report 4521737-X (Version None)
Quarter: 2004Q4

REPORT INFORMATION
  Report Type: 
  Country: None (occurrence: None)
  Receive Date: 20041206
  Receipt Date: 20041110
  Transmission Date: 20050328
  Serious: Yes (Other)
  Sender: FDA-Public Use
  Company Number: M2004-1807

PATIENT
  Age: 55 Year
  Sex: Female

DRUGS (2)
  1. NYDRAZID (ISONIAZID) [Suspect]
     Indication: DISSEMINATED TUBERCULOSIS
  2. RIMACTANE [Suspect]
     Indication: DISSEMINATED TUBERCULOSIS

REACTIONS (1)
  - NEPHRITIS INTERSTITIAL [None]
